FAERS Safety Report 17478618 (Version 1)
Quarter: 2020Q1

REPORT INFORMATION
  Report Type: Report from Study
  Country: US (occurrence: US)
  Receive Date: 20200228
  Receipt Date: 20200228
  Transmission Date: 20200409
  Serious: Yes (Death)
  Sender: FDA-Public Use
  Company Number: US-ASTRAZENECA-2020SE29546

PATIENT
  Age: 27372 Day
  Sex: Male

DRUGS (5)
  1. CALQUENCE [Suspect]
     Active Substance: ACALABRUTINIB
     Indication: MANTLE CELL LYMPHOMA
     Dosage: 100MG/G EVERY 12 HOURS
     Route: 048
  2. MORPHINE [Concomitant]
     Active Substance: MORPHINE
  3. ATENOLOL. [Concomitant]
     Active Substance: ATENOLOL
  4. CENTRUM [Concomitant]
     Active Substance: VITAMINS
  5. HYDROCODONE [Concomitant]
     Active Substance: HYDROCODONE

REACTIONS (1)
  - Death [Fatal]

NARRATIVE: CASE EVENT DATE: 20200224
